FAERS Safety Report 4490114-2 (Version None)
Quarter: 2004Q4

REPORT INFORMATION
  Report Type: 
  Country: None (occurrence: None)
  Receive Date: 20041028
  Receipt Date: 20041008
  Transmission Date: 20050328
  Serious: Yes (Hospitalization, Other)
  Sender: FDA-Public Use
  Company Number: ATO-04-0850

PATIENT
  Age: 44 Year
  Sex: Female
  Weight: 45.3597 kg

DRUGS (12)
  1. TRISENOX [Suspect]
     Indication: MULTIPLE MYELOMA
     Dosage: 0.25 MG /KG (0.25 MG/KG, 5 DOSE LOAD: 2X/WK), IV
     Route: 042
     Dates: start: 20040917, end: 20040921
  2. ASCORBIC ACID [Suspect]
     Indication: MULTIPLE MYELOMA
  3. ARANESP [Concomitant]
  4. ALLOPURINOL [Concomitant]
  5. MOTRIN [Concomitant]
  6. PERCOCET [Concomitant]
  7. DITROPAN [Concomitant]
  8. MIACALCIN [Concomitant]
  9. ZOLOFT [Concomitant]
  10. DURAGESIC [Concomitant]
  11. VELCADE [Concomitant]
  12. BOTOX PURIFIED NEUROTOXIN COMPLEX [Concomitant]

REACTIONS (17)
  - ALANINE AMINOTRANSFERASE INCREASED [None]
  - ASPARTATE AMINOTRANSFERASE INCREASED [None]
  - BLOOD ARSENIC INCREASED [None]
  - BLOOD CALCIUM INCREASED [None]
  - BLOOD PRESSURE DECREASED [None]
  - CONFUSIONAL STATE [None]
  - DEHYDRATION [None]
  - ESCHERICHIA URINARY TRACT INFECTION [None]
  - HAEMATEMESIS [None]
  - HEPATOTOXICITY [None]
  - HYPERTENSION [None]
  - MARKEDLY REDUCED DIETARY INTAKE [None]
  - MENTAL STATUS CHANGES [None]
  - NAUSEA [None]
  - PANCYTOPENIA [None]
  - SEDATION [None]
  - VOMITING [None]
